FAERS Safety Report 4332020-X (Version None)
Quarter: 2004Q2

REPORT INFORMATION
  Report Type: 
  Country: None (occurrence: None)
  Receive Date: 20040405
  Receipt Date: 20040329
  Transmission Date: 20050107
  Serious: Yes (Death, Other)
  Sender: FDA-Public Use
  Company Number: PHFR2004GB01563

PATIENT
  Age: 38 Year
  Sex: Male

DRUGS (6)
  1. CYCLOSPORINE [Suspect]
     Indication: BONE MARROW TRANSPLANT
     Dosage: FROM DAY -1
     Route: 065
  2. MABCAMPATH [Suspect]
     Indication: BONE MARROW TRANSPLANT
     Dosage: 20MG/D DAYS -8 TO -4
     Route: 065
  3. FLUDARABINE PHOSPHATE [Suspect]
     Indication: BONE MARROW TRANSPLANT
     Dosage: 30MG/M2 DAYS -7 TO -3
  4. MELPHALAN [Suspect]
     Indication: BONE MARROW TRANSPLANT
     Dosage: 140MG/M2 DAY -2
     Route: 065
  5. IMMUNE GLOBULIN INTRAVENOUS (HUMAN) [Suspect]
     Indication: BONE MARROW TRANSPLANT
     Route: 065
  6. CORTICOSTEROIDS [Suspect]

REACTIONS (8)
  - ADENOVIRAL HEPATITIS [None]
  - ADENOVIRUS INFECTION [None]
  - GASTROENTERITIS [None]
  - GASTROENTERITIS ADENOVIRUS [None]
  - GRAFT VERSUS HOST DISEASE [None]
  - HEPATIC FAILURE [None]
  - LYMPHOCYTE COUNT INCREASED [None]
  - PNEUMONIA ADENOVIRAL [None]
